FAERS Safety Report 4486662-1 (Version None)
Quarter: 2004Q4

REPORT INFORMATION
  Report Type: 
  Country: None (occurrence: None)
  Receive Date: 20041021
  Receipt Date: 20041008
  Transmission Date: 20050328
  Serious: Yes (Hospitalization)
  Sender: FDA-Public Use
  Company Number: 2004238364US

PATIENT
  Age: 47 Year
  Sex: Male
  Weight: 76.2 kg

DRUGS (2)
  1. DEPO-MEDROL [Suspect]
     Indication: MUSCULOSKELETAL DISCOMFORT
     Dosage: 80 MG, BID, EPIDURAL
     Route: 008
     Dates: start: 20020130
  2. MARCAINE [Suspect]
     Indication: MUSCULOSKELETAL DISCOMFORT
     Dosage: EPIDURAL
     Route: 008
     Dates: start: 20020130

REACTIONS (6)
  - ARACHNOIDITIS [None]
  - DRUG INEFFECTIVE [None]
  - DYSSTASIA [None]
  - INJECTION SITE PAIN [None]
  - MEDICATION ERROR [None]
  - WEIGHT INCREASED [None]
